FAERS Safety Report 10487917 (Version 5)
Quarter: 2015Q1

REPORT INFORMATION
  Report Type: Report from Study
  Country: CA (occurrence: CA)
  Receive Date: 20141001
  Receipt Date: 20150126
  Transmission Date: 20150720
  Serious: Yes (Other)
  Sender: FDA-Public Use
  Company Number: CA-PFIZER INC-2014269429

PATIENT
  Sex: Female

DRUGS (2)
  1. DOXORUBICIN HCL [Suspect]
     Active Substance: DOXORUBICIN HYDROCHLORIDE
     Indication: NEOPLASM
     Dosage: 60 MG/M2, EVERY 3 WEEKS
     Route: 042
  2. PANTOPRAZOLE [Suspect]
     Active Substance: PANTOPRAZOLE SODIUM
     Indication: OVARIAN CANCER
     Dosage: 240 MG, UNK (30-60 MIN PRIOR TO EACH DOXORUBICIN INFUSION)
     Route: 042

REACTIONS (1)
  - Febrile neutropenia [Unknown]
